FAERS Safety Report 24350026 (Version 1)
Quarter: 2024Q3

REPORT INFORMATION
  Report Type: Report from Study
  Country: KR (occurrence: KR)
  Receive Date: 20240923
  Receipt Date: 20240923
  Transmission Date: 20241017
  Serious: No
  Sender: ROCHE
  Company Number: KR-ROCHE-3496144

PATIENT
  Age: 76 Year

DRUGS (2)
  1. TRASTUZUMAB [Suspect]
     Active Substance: TRASTUZUMAB
     Indication: Bladder cancer
     Dosage: ON 27/DEC/2023, RECEIVED MOST RECENT DOSE OF THE STUDY DRUG
     Route: 065
     Dates: start: 20231206
  2. PERTUZUMAB [Suspect]
     Active Substance: PERTUZUMAB
     Indication: Bladder cancer
     Dosage: ON 27/DEC/2023, RECEIVED MOST RECENT DOSE OF THE STUDY DRUG
     Route: 065
     Dates: start: 20231206

REACTIONS (3)
  - Pyrexia [Recovered/Resolved]
  - Proctalgia [Recovered/Resolved]
  - Dermatitis bullous [Recovering/Resolving]

NARRATIVE: CASE EVENT DATE: 20231206
